FAERS Safety Report 16798975 (Version 1)
Quarter: 2019Q3

REPORT INFORMATION
  Report Type: Spontaneous
  Country: US (occurrence: US)
  Receive Date: 20190912
  Receipt Date: 20190912
  Transmission Date: 20191005
  Serious: No
  Sender: FDA-Public Use
  Company Number: US-PFIZER INC-2019320445

PATIENT
  Age: 63 Year
  Sex: Female
  Weight: 77.11 kg

DRUGS (2)
  1. LYRICA [Suspect]
     Active Substance: PREGABALIN
     Dosage: UNK, 1X/DAY [50MG ONE TO TWO CAPSULES BY MOUTH AT BEDTIME]
     Route: 048
  2. LYRICA [Suspect]
     Active Substance: PREGABALIN
     Indication: FIBROMYALGIA
     Dosage: UNK, 1X/DAY [75MG ONE OR TWO CAPSULES BEFORE BED BY MOUTH]
     Route: 048
     Dates: start: 201905

REACTIONS (1)
  - Fatigue [Unknown]
